FAERS Safety Report 8269551-6 (Version None)
Quarter: 2012Q2

REPORT INFORMATION
  Report Type: 
  Country: None (occurrence: None)
  Receive Date: 20120409
  Receipt Date: 20120328
  Transmission Date: 20120825
  Serious: Yes (Hospitalization)
  Sender: FDA-Public Use
  Company Number: AU-BAXTER-2012BH005050

PATIENT
  Sex: Male

DRUGS (4)
  1. HYDROCORTISONE [Concomitant]
     Route: 042
     Dates: start: 20120202
  2. PLATELETS [Concomitant]
     Indication: THROMBOCYTOPENIA
     Route: 042
     Dates: start: 20120131
  3. MIDAZOLAM [Concomitant]
     Route: 042
     Dates: start: 20120202
  4. KIOVIG [Suspect]
     Route: 042
     Dates: start: 20120202, end: 20120202

REACTIONS (4)
  - OXYGEN SATURATION DECREASED [None]
  - COUGH [None]
  - ERYTHEMA [None]
  - LIP SWELLING [None]
